FAERS Safety Report 4370692-4 (Version None)
Quarter: 2004Q2

REPORT INFORMATION
  Report Type: 
  Country: None (occurrence: None)
  Receive Date: 20040601
  Receipt Date: 20040527
  Transmission Date: 20050107
  Serious: Yes (Life-Threatening)
  Sender: FDA-Public Use
  Company Number: 2004-116395-NL

PATIENT
  Age: 77 Year
  Sex: Female

DRUGS (3)
  1. MIRTAZAPINE [Suspect]
     Indication: DEPRESSION
     Dosage: 30 MG QD
     Route: 048
     Dates: start: 20040401, end: 20040501
  2. RIVASTIGMINE TARTRATE [Concomitant]
  3. VENLAFAXINE HCL [Concomitant]

REACTIONS (5)
  - DELUSION [None]
  - DYSKINESIA [None]
  - HYPERCAPNIA [None]
  - RESPIRATORY FAILURE [None]
  - SOMNOLENCE [None]
